FAERS Safety Report 19805638 (Version 2)
Quarter: 2022Q2

REPORT INFORMATION
  Report Type: Spontaneous
  Country: US (occurrence: None)
  Receive Date: 20210908
  Receipt Date: 20220421
  Transmission Date: 20220720
  Serious: Yes (Other)
  Sender: FDA-Public Use
  Company Number: 2021A707750

PATIENT
  Age: 23743 Day
  Sex: Male
  Weight: 106.6 kg

DRUGS (42)
  1. NEXIUM [Suspect]
     Active Substance: ESOMEPRAZOLE MAGNESIUM
     Indication: Gastrooesophageal reflux disease
     Route: 048
  2. NEXIUM [Suspect]
     Active Substance: ESOMEPRAZOLE MAGNESIUM
     Indication: Gastrooesophageal reflux disease
     Route: 048
  3. NEXIUM [Suspect]
     Active Substance: ESOMEPRAZOLE MAGNESIUM
     Indication: Gastrooesophageal reflux disease
     Route: 048
  4. NEXIUM [Suspect]
     Active Substance: ESOMEPRAZOLE MAGNESIUM
     Indication: Gastrooesophageal reflux disease
     Route: 048
  5. PROTONIX [Suspect]
     Active Substance: PANTOPRAZOLE SODIUM
     Indication: Gastrooesophageal reflux disease
     Route: 065
  6. PROTONIX [Suspect]
     Active Substance: PANTOPRAZOLE SODIUM
     Indication: Gastrooesophageal reflux disease
     Route: 065
  7. PROTONIX [Suspect]
     Active Substance: PANTOPRAZOLE SODIUM
     Indication: Gastrooesophageal reflux disease
     Route: 065
  8. PROTONIX [Suspect]
     Active Substance: PANTOPRAZOLE SODIUM
     Indication: Gastrooesophageal reflux disease
     Route: 065
  9. PROTONIX [Suspect]
     Active Substance: PANTOPRAZOLE SODIUM
     Indication: Gastrooesophageal reflux disease
     Dosage: GENERIC
     Route: 065
  10. PROTONIX [Suspect]
     Active Substance: PANTOPRAZOLE SODIUM
     Indication: Gastrooesophageal reflux disease
     Dosage: GENERIC
     Route: 065
  11. LIPITOR [Concomitant]
     Active Substance: ATORVASTATIN CALCIUM
     Indication: Hyperlipidaemia
  12. CELEBREX [Concomitant]
     Active Substance: CELECOXIB
     Indication: Pain
  13. VIOXX [Concomitant]
     Active Substance: ROFECOXIB
     Indication: Pain
  14. PLAVIX [Concomitant]
     Active Substance: CLOPIDOGREL BISULFATE
     Indication: Hypertension
  15. ZITHROMAX [Concomitant]
     Active Substance: AZITHROMYCIN DIHYDRATE
     Indication: Infection
  16. ERYTHROMYCIN [Concomitant]
     Active Substance: ERYTHROMYCIN
     Indication: Infection
  17. CEFTIN [Concomitant]
     Active Substance: CEFUROXIME AXETIL
     Indication: Infection
  18. LASIX [Concomitant]
     Active Substance: FUROSEMIDE
     Indication: Hypertension
  19. HYDROCHLOROTHIAZIDE [Concomitant]
     Active Substance: HYDROCHLOROTHIAZIDE
     Indication: Hypertension
  20. MOBIC [Concomitant]
     Active Substance: MELOXICAM
     Indication: Pain
  21. NORVASC [Concomitant]
     Active Substance: AMLODIPINE BESYLATE
  22. METHYLPREDNISOLONE [Concomitant]
     Active Substance: METHYLPREDNISOLONE
  23. HYDROCODONE [Concomitant]
     Active Substance: HYDROCODONE
  24. CYCLOBENZAPRINE [Concomitant]
     Active Substance: CYCLOBENZAPRINE
  25. SKELAXIN [Concomitant]
     Active Substance: METAXALONE
  26. GEMFIBROZIL [Concomitant]
     Active Substance: GEMFIBROZIL
  27. VIAGRA [Concomitant]
     Active Substance: SILDENAFIL CITRATE
  28. INDAPAMIDE [Concomitant]
     Active Substance: INDAPAMIDE
  29. NEURONTIN [Concomitant]
     Active Substance: GABAPENTIN
  30. WELLBUTRIN [Concomitant]
     Active Substance: BUPROPION HYDROCHLORIDE
  31. OXYCONTIN [Concomitant]
     Active Substance: OXYCODONE HYDROCHLORIDE
  32. VASOTEC [Concomitant]
     Active Substance: ENALAPRIL MALEATE
  33. GUAIFENESIN [Concomitant]
     Active Substance: GUAIFENESIN
  34. CLINDAMYCIN [Concomitant]
     Active Substance: CLINDAMYCIN
  35. MEPERIDINE HYDROCHLORIDE\PROMETHAZINE HYDROCHLORIDE [Concomitant]
     Active Substance: MEPERIDINE HYDROCHLORIDE\PROMETHAZINE HYDROCHLORIDE
  36. CARISOPRODOL [Concomitant]
     Active Substance: CARISOPRODOL
  37. DOCUSATE [Concomitant]
     Active Substance: DOCUSATE
  38. MOMETASONE [Concomitant]
     Active Substance: MOMETASONE
  39. LIDODERM [Concomitant]
     Active Substance: LIDOCAINE
  40. NITROSTAT [Concomitant]
     Active Substance: NITROGLYCERIN
  41. PROMETHAZINE [Concomitant]
     Active Substance: PROMETHAZINE HYDROCHLORIDE
  42. PROVENTIL [Concomitant]
     Active Substance: ALBUTEROL

REACTIONS (1)
  - Chronic kidney disease [Not Recovered/Not Resolved]

NARRATIVE: CASE EVENT DATE: 20190312
